FAERS Safety Report 5546805-5 (Version None)
Quarter: 2007Q4

REPORT INFORMATION
  Report Type: 
  Country: None (occurrence: None)
  Receive Date: 20071211
  Receipt Date: 20071211
  Transmission Date: 20080405
  Serious: Yes (Other)
  Sender: FDA-Public Use
  Company Number: A0698246A

PATIENT
  Age: 47 Year
  Sex: Female

DRUGS (1)
  1. ALLI [Suspect]
     Route: 048
     Dates: end: 20071208

REACTIONS (4)
  - ANGER [None]
  - DEPRESSION [None]
  - REACTIVE PSYCHOSIS [None]
  - THINKING ABNORMAL [None]
